FAERS Safety Report 13032776 (Version 11)
Quarter: 2019Q1

REPORT INFORMATION
  Report Type: Report from Study
  Country: US (occurrence: US)
  Receive Date: 20161215
  Receipt Date: 20190321
  Transmission Date: 20190417
  Serious: Yes (Death, Hospitalization, Other)
  Sender: FDA-Public Use
  Company Number: US-ACTELION-A-NJ2016-147046

PATIENT
  Age: 66 Year
  Sex: Female
  Weight: 200 kg

DRUGS (3)
  1. OPSUMIT [Suspect]
     Active Substance: MACITENTAN
     Indication: PULMONARY ARTERIAL HYPERTENSION
     Dosage: 10 MG, QD
     Route: 048
     Dates: start: 20150501, end: 20170901
  2. REVATIO [Concomitant]
     Active Substance: SILDENAFIL CITRATE
  3. TYVASO [Concomitant]
     Active Substance: TREPROSTINIL

REACTIONS (12)
  - Septic shock [Fatal]
  - Hypoxia [Recovered/Resolved]
  - Hypertension [Unknown]
  - Lung disorder [Fatal]
  - Hepatic cirrhosis [Fatal]
  - Blood bilirubin increased [Recovered/Resolved]
  - Aspartate aminotransferase increased [Recovered/Resolved]
  - Ammonia increased [Recovered/Resolved]
  - Pulmonary hypertension [Unknown]
  - Right ventricular failure [Recovered/Resolved]
  - Fluid overload [Recovered/Resolved]
  - Cardiac cirrhosis [Recovered/Resolved]

NARRATIVE: CASE EVENT DATE: 20161122
